FAERS Safety Report 25749456 (Version 1)
Quarter: 2025Q3

REPORT INFORMATION
  Report Type: Report from Study
  Country: CA (occurrence: CA)
  Receive Date: 20250902
  Receipt Date: 20250902
  Transmission Date: 20251020
  Serious: Yes (Hospitalization)
  Sender: TAKEDA
  Company Number: CA-TAKEDA-2025TUS075680

PATIENT
  Sex: Female

DRUGS (13)
  1. VEDOLIZUMAB [Suspect]
     Active Substance: VEDOLIZUMAB
     Indication: Crohn^s disease
  2. VEDOLIZUMAB [Suspect]
     Active Substance: VEDOLIZUMAB
     Dosage: 300 MILLIGRAM, Q4WEEKS
     Dates: start: 20180111
  3. VEDOLIZUMAB [Suspect]
     Active Substance: VEDOLIZUMAB
     Dosage: 300 MILLIGRAM, Q4WEEKS
     Dates: start: 20180810
  4. VEDOLIZUMAB [Suspect]
     Active Substance: VEDOLIZUMAB
  5. APIXABAN [Concomitant]
     Active Substance: APIXABAN
  6. ACETAMINOPHEN [Concomitant]
     Active Substance: ACETAMINOPHEN
  7. BISOPROLOL [Concomitant]
     Active Substance: BISOPROLOL
  8. VITAMIN D3 [Concomitant]
     Active Substance: CHOLECALCIFEROL
  9. ROSUVASTATIN [Concomitant]
     Active Substance: ROSUVASTATIN
  10. XARELTO [Concomitant]
     Active Substance: RIVAROXABAN
     Indication: Anticoagulant therapy
  11. Cortiment [Concomitant]
     Dosage: 9 MILLIGRAM, QD
  12. FOLIC ACID [Concomitant]
     Active Substance: FOLIC ACID
  13. METHOTREXATE [Concomitant]
     Active Substance: METHOTREXATE

REACTIONS (1)
  - Chest pain [Recovered/Resolved]
